FAERS Safety Report 4409686-9 (Version None)
Quarter: 2004Q3

REPORT INFORMATION
  Report Type: 
  Country: None (occurrence: None)
  Receive Date: 20040727
  Receipt Date: 20040712
  Transmission Date: 20050211
  Serious: No
  Sender: FDA-Public Use
  Company Number: 2004GB00589

PATIENT
  Age: 68 Year
  Sex: Male
  Weight: 59.3 kg

DRUGS (2)
  1. CRESTOR [Suspect]
     Indication: HYPERLIPIDAEMIA
     Dosage: 10 MG PO
     Route: 048
     Dates: start: 20031101, end: 20040101
  2. ASPIRIN [Suspect]
     Dosage: 75 MG PO
     Route: 048
     Dates: start: 20000101

REACTIONS (2)
  - HAEMATURIA [None]
  - NEPHROPATHY TOXIC [None]
